FAERS Safety Report 9792750 (Version 1)
Quarter: 2014Q1

REPORT INFORMATION
  Report Type: Spontaneous
  Country: US (occurrence: US)
  Receive Date: 20140102
  Receipt Date: 20140102
  Transmission Date: 20141002
  Serious: Yes (Other)
  Sender: FDA-Public Use
  Company Number: US-ASTRAZENECA-2014SE00064

PATIENT
  Age: 64 Year
  Sex: Female

DRUGS (7)
  1. BYDUREON [Suspect]
     Route: 065
     Dates: start: 201306, end: 201308
  2. LISINOPRIL (NON AZ PRODUCT) [Suspect]
     Route: 048
  3. ZOLOFT [Concomitant]
  4. AMBIEN [Concomitant]
  5. NEXIUM [Concomitant]
  6. TOPAMAX [Concomitant]
  7. VYTORIN [Concomitant]

REACTIONS (1)
  - Pancreatitis [Unknown]
